FAERS Safety Report 4535897-8 (Version None)
Quarter: 2004Q4

REPORT INFORMATION
  Report Type: 
  Country: None (occurrence: None)
  Receive Date: 20041222
  Receipt Date: 20041222
  Transmission Date: 20050328
  Serious: Yes (Other)
  Sender: FDA-Public Use
  Company Number: None

PATIENT
  Age: 52 Year
  Sex: Female
  Weight: 89.8122 kg

DRUGS (1)
  1. FLUCONAZOLE [Suspect]
     Indication: AUTOIMMUNE HEPATITIS

REACTIONS (4)
  - ABNORMAL FAECES [None]
  - DIARRHOEA [None]
  - JAUNDICE [None]
  - RASH PRURITIC [None]
